FAERS Safety Report 20175886 (Version 1)
Quarter: 2021Q4

REPORT INFORMATION
  Report Type: Spontaneous
  Country: US (occurrence: None)
  Receive Date: 20211210
  Receipt Date: 20211210
  Transmission Date: 20220303
  Serious: No
  Sender: FDA-Public Use
  Company Number: None

PATIENT
  Age: 65 Year
  Sex: Female
  Weight: 96.2 kg

DRUGS (1)
  1. REGEN-COV [Suspect]
     Active Substance: CASIRIVIMAB\IMDEVIMAB
     Indication: COVID-19
     Dosage: OTHER FREQUENCY : ONE-TIME;?
     Route: 042
     Dates: start: 20211207, end: 20211207

REACTIONS (5)
  - Bone pain [None]
  - Rash [None]
  - Pelvic pain [None]
  - Back pain [None]
  - Therapy cessation [None]

NARRATIVE: CASE EVENT DATE: 20211207
